FAERS Safety Report 8193131-4 (Version None)
Quarter: 2012Q1

REPORT INFORMATION
  Report Type: 
  Country: None (occurrence: None)
  Receive Date: 20120221
  Receipt Date: 20111114
  Transmission Date: 20120608
  Serious: No
  Sender: FDA-Public Use
  Company Number: 1000024243

PATIENT
  Age: 65 Year
  Sex: Male

DRUGS (3)
  1. VIIBRYD [Suspect]
     Dosage: 10 MG (10 MG, 1 IN 1 D), ORAL; 20 MG (20 MG, 1 IN 1 D), ORAL
     Route: 048
     Dates: start: 20110711, end: 20110717
  2. VIIBRYD [Suspect]
     Dosage: 10 MG (10 MG, 1 IN 1 D), ORAL; 20 MG (20 MG, 1 IN 1 D), ORAL
     Route: 048
     Dates: start: 20110718, end: 20110724
  3. VIIBRYD [Suspect]
     Dosage: 40 MG (40 MG, 1 IN 1 D), ORAL
     Route: 048
     Dates: start: 20110725, end: 20110101

REACTIONS (3)
  - DRUG INEFFECTIVE [None]
  - DIARRHOEA [None]
  - ARTHRALGIA [None]
